FAERS Safety Report 12461502 (Version 1)
Quarter: 2016Q2

REPORT INFORMATION
  Report Type: Spontaneous
  Country: FR (occurrence: FR)
  Receive Date: 20160613
  Receipt Date: 20160613
  Transmission Date: 20160815
  Serious: Yes (Hospitalization)
  Sender: FDA-Public Use
  Company Number: FR-PFIZER INC-2016287256

PATIENT
  Age: 83 Year
  Sex: Female

DRUGS (11)
  1. ELIQUIS [Concomitant]
     Active Substance: APIXABAN
     Dosage: UNK
  2. OXYCONTIN [Concomitant]
     Active Substance: OXYCODONE HYDROCHLORIDE
     Dosage: UNK
  3. DALACINE [Suspect]
     Active Substance: CLINDAMYCIN HYDROCHLORIDE
     Indication: ERYSIPELAS
     Dosage: 600 MG, 3X/DAY
     Route: 048
     Dates: start: 20160414, end: 20160419
  4. BISOCE [Suspect]
     Active Substance: BISOPROLOL
     Indication: ARRHYTHMIA
     Dosage: 2.5 MG, 1X/DAY
     Route: 048
     Dates: start: 20160414, end: 20160415
  5. ULTRA LEVURE [Concomitant]
     Active Substance: SACCHAROMYCES CEREVISIAE
     Dosage: UNK
  6. LASILIX [Suspect]
     Active Substance: FUROSEMIDE
     Indication: HYPERTENSION
     Dosage: 20 MG, 1X/DAY
     Route: 048
     Dates: start: 2011
  7. TIORFAN [Concomitant]
     Active Substance: RACECADOTRIL
     Dosage: UNK
  8. BISOPROLOL ACCORD [Suspect]
     Active Substance: BISOPROLOL
     Indication: ARRHYTHMIA
     Dosage: 1 DF, 1X/DAY
     Route: 048
     Dates: start: 20160416, end: 20160419
  9. COLCHICINE OPOCALCIUM [Suspect]
     Active Substance: COLCHICINE
     Indication: CHONDROCALCINOSIS
     Dosage: 1 MG, 1X/DAY
     Route: 048
     Dates: start: 20160416, end: 20160419
  10. SERETIDE [Concomitant]
     Active Substance: FLUTICASONE PROPIONATE\SALMETEROL XINAFOATE
     Dosage: UNK
  11. VALSARTAN ACTAVIS [Suspect]
     Active Substance: VALSARTAN
     Indication: HYPERTENSION
     Dosage: 1 DF, 1X/DAY
     Route: 048
     Dates: start: 2011, end: 20160418

REACTIONS (2)
  - Hypotension [Recovered/Resolved]
  - Acute prerenal failure [Recovered/Resolved]

NARRATIVE: CASE EVENT DATE: 20160419
